FAERS Safety Report 5962483-5 (Version None)
Quarter: 2008Q4

REPORT INFORMATION
  Report Type: 
  Country: None (occurrence: None)
  Receive Date: 20081121
  Receipt Date: 20081111
  Transmission Date: 20090506
  Serious: Yes (Death, Hospitalization, Other)
  Sender: FDA-Public Use
  Company Number: AU-PFIZER INC-2008088814

PATIENT
  Sex: Male
  Weight: 89 kg

DRUGS (4)
  1. LIPITOR [Suspect]
     Indication: DIABETES MELLITUS
     Route: 048
     Dates: start: 20071003
  2. PRAVACHOL [Suspect]
     Dates: end: 20071001
  3. ACCUPRIL [Concomitant]
     Route: 048
     Dates: start: 19990101
  4. GLUCOPHAGE [Concomitant]
     Route: 048
     Dates: start: 19980101

REACTIONS (12)
  - ACUTE CORONARY SYNDROME [None]
  - ARTHRALGIA [None]
  - ASTHENIA [None]
  - BACK PAIN [None]
  - DEATH [None]
  - FALL [None]
  - LIVER FUNCTION TEST ABNORMAL [None]
  - MALAISE [None]
  - MUSCULAR WEAKNESS [None]
  - NAUSEA [None]
  - RHABDOMYOLYSIS [None]
  - WEIGHT DECREASED [None]
